FAERS Safety Report 5700824-4 (Version None)
Quarter: 2008Q2

REPORT INFORMATION
  Report Type: 
  Country: None (occurrence: None)
  Receive Date: 20080407
  Receipt Date: 20080321
  Transmission Date: 20081010
  Serious: Yes (Death, Life-Threatening)
  Sender: FDA-Public Use
  Company Number: 2008JP000144

PATIENT
  Age: 87 Year
  Sex: Male

DRUGS (8)
  1. FUNGUARD (MICAFUNGIN) INJECTION [Suspect]
     Indication: PNEUMONIA
     Dosage: 150 MG, UID/QD, IV DRIP
     Route: 041
     Dates: start: 20071229, end: 20080106
  2. TARGOCID [Suspect]
     Indication: PNEUMONIA
     Dosage: 400 MG, UID/QD, IV DRIP
     Route: 041
     Dates: start: 20071228, end: 20080107
  3. PACIL (PAZUFLOXACIN) INJECTION [Suspect]
     Indication: PNEUMONIA
     Dosage: 0.5 G, BID, IV NOS; 0.5 G, BID, IV NOS
     Route: 042
     Dates: start: 20071217, end: 20071225
  4. PACIL (PAZUFLOXACIN) INJECTION [Suspect]
     Indication: PNEUMONIA
     Dosage: 0.5 G, BID, IV NOS; 0.5 G, BID, IV NOS
     Route: 042
     Dates: start: 20071228, end: 20080107
  5. FLAGYL [Suspect]
     Indication: ENTERITIS
     Dosage: 500 MG, TID, ORAL
     Route: 048
     Dates: start: 20071229, end: 20080106
  6. PRODIF (FLUCONAZOLE) INJECTION [Concomitant]
  7. LEVOFLOXACIN [Concomitant]
  8. MAXIPINE (CEFEPIME HYDROCHLORIDE) INJECTION [Concomitant]

REACTIONS (25)
  - ASPIRATION [None]
  - ASTHENIA [None]
  - ATRIAL FIBRILLATION [None]
  - BLOOD PRESSURE INCREASED [None]
  - CLOSTRIDIUM DIFFICILE COLITIS [None]
  - CONDITION AGGRAVATED [None]
  - DEHYDRATION [None]
  - DRUG HYPERSENSITIVITY [None]
  - ENTERITIS [None]
  - EOSINOPHIL COUNT INCREASED [None]
  - HYPERTHERMIA [None]
  - HYPOVOLAEMIA [None]
  - INTERSTITIAL LUNG DISEASE [None]
  - MUSCULAR WEAKNESS [None]
  - NASOPHARYNGITIS [None]
  - NO THERAPEUTIC RESPONSE [None]
  - PLEURAL EFFUSION [None]
  - PNEUMONIA PRIMARY ATYPICAL [None]
  - PSEUDOMONAS INFECTION [None]
  - RASH [None]
  - RESPIRATORY FAILURE [None]
  - SPUTUM CULTURE POSITIVE [None]
  - STAPHYLOCOCCAL INFECTION [None]
  - SUPRAVENTRICULAR EXTRASYSTOLES [None]
  - TUBERCULOSIS [None]
